FAERS Safety Report 5211127-9 (Version None)
Quarter: 2006Q4

REPORT INFORMATION
  Report Type: 
  Country: None (occurrence: None)
  Receive Date: 20061130
  Receipt Date: 20061130
  Transmission Date: 20070319
  Serious: Yes (Other)
  Sender: FDA-Public Use
  Company Number: WAES 0502USA00711

PATIENT
  Age: 80 Year
  Sex: Female
  Weight: 43.0917 kg

DRUGS (5)
  1. FOSAMAX [Suspect]
     Indication: OSTEOPOROSIS
     Dosage: 70 MG WKY PO
     Route: 048
     Dates: start: 19970523, end: 20051101
  2. THERAPY UNSPECIFIED [Concomitant]
  3. ALPRAZOLAM [Concomitant]
  4. TRIAMTERENE AND HYDROCHLOROTHIAZIDE [Concomitant]
  5. POTASSIUM (UNSPECIFIED) [Concomitant]

REACTIONS (4)
  - ERYTHEMA [None]
  - LICHEN PLANUS [None]
  - OSTEONECROSIS [None]
  - TOOTH DISORDER [None]
